FAERS Safety Report 19940143 (Version 1)
Quarter: 2021Q4

REPORT INFORMATION
  Report Type: Spontaneous
  Country: IT (occurrence: IT)
  Receive Date: 20211011
  Receipt Date: 20211011
  Transmission Date: 20220303
  Serious: Yes (Other)
  Sender: FDA-Public Use
  Company Number: IT-SA-SAC20211005000521

PATIENT

DRUGS (1)
  1. CABLIVI [Suspect]
     Active Substance: CAPLACIZUMAB-YHDP
     Indication: Thrombotic thrombocytopenic purpura
     Dosage: 16 AMPOULES

REACTIONS (3)
  - Gastrointestinal injury [Unknown]
  - Intestinal haemorrhage [Unknown]
  - Computerised tomogram abnormal [Unknown]
